FAERS Safety Report 8824561 (Version 1)
Quarter: 2012Q4

REPORT INFORMATION
  Report Type: 
  Country: US (occurrence: US)
  Receive Date: 20121004
  Receipt Date: 20121004
  Transmission Date: 20130627
  Serious: Yes (Other)
  Sender: FDA-Public Use
  Company Number: US-JNJFOC-20120911614

PATIENT
  Age: 68 Year
  Sex: Female
  Weight: 80.74 kg

DRUGS (5)
  1. XARELTO [Suspect]
     Indication: CEREBROVASCULAR ACCIDENT PROPHYLAXIS
     Route: 048
     Dates: start: 20120902
  2. XARELTO [Suspect]
     Indication: ATRIAL FIBRILLATION
     Route: 048
     Dates: start: 20120902
  3. DILTIAZEM [Suspect]
     Indication: BLOOD PRESSURE
     Route: 048
     Dates: start: 20120902
  4. XYZAL [Concomitant]
     Indication: MULTIPLE ALLERGIES
     Route: 048
     Dates: start: 201208
  5. PRILOSEC [Concomitant]
     Indication: GASTRIC DISORDER
     Route: 048

REACTIONS (5)
  - Blood pressure increased [Unknown]
  - Asthenia [Recovering/Resolving]
  - Swelling [Unknown]
  - Headache [Not Recovered/Not Resolved]
  - Dizziness [Recovering/Resolving]
